FAERS Safety Report 12395830 (Version 2)
Quarter: 2016Q2

REPORT INFORMATION
  Report Type: Spontaneous
  Country: US (occurrence: US)
  Receive Date: 20160523
  Receipt Date: 20160607
  Transmission Date: 20160815
  Serious: Yes (Hospitalization)
  Sender: FDA-Public Use
  Company Number: US-RELYPSA-RLY2016000773

PATIENT

DRUGS (10)
  1. FENOFIBRATE. [Concomitant]
     Active Substance: FENOFIBRATE
  2. VELTASSA [Suspect]
     Active Substance: PATIROMER
     Indication: HYPERKALAEMIA
     Dosage: 8.4 G, QD
     Route: 048
     Dates: start: 20160423
  3. PROAIR HFA [Concomitant]
     Active Substance: ALBUTEROL SULFATE
  4. ASPIRIN 81 [Concomitant]
     Active Substance: ASPIRIN
  5. ACTOPLUS MET [Concomitant]
     Active Substance: METFORMIN HYDROCHLORIDE\PIOGLITAZONE HYDROCHLORIDE
  6. SPIRONOLACTONE. [Concomitant]
     Active Substance: SPIRONOLACTONE
  7. METOPROLOL SUCCINATE. [Concomitant]
     Active Substance: METOPROLOL SUCCINATE
  8. SERTRALINE HCL [Concomitant]
     Active Substance: SERTRALINE HYDROCHLORIDE
  9. OMEPRAZOLE                         /00661202/ [Concomitant]
  10. FLOMAX [Concomitant]
     Active Substance: TAMSULOSIN HYDROCHLORIDE

REACTIONS (1)
  - Hospitalisation [Not Recovered/Not Resolved]

NARRATIVE: CASE EVENT DATE: 201605
